FAERS Safety Report 7508780-3 (Version None)
Quarter: 2011Q2

REPORT INFORMATION
  Report Type: 
  Country: None (occurrence: None)
  Receive Date: 20110527
  Receipt Date: 20110211
  Transmission Date: 20111010
  Serious: No
  Sender: FDA-Public Use
  Company Number: A0913155A

PATIENT
  Age: 64 Year
  Sex: Male

DRUGS (4)
  1. UROXATRAL [Concomitant]
  2. HYDROCHLOROTHIAZIDE [Concomitant]
  3. LIPITOR [Concomitant]
  4. VENTOLIN [Suspect]
     Dosage: 1PUFF AS REQUIRED
     Route: 055
     Dates: start: 20030101

REACTIONS (2)
  - DRUG INEFFECTIVE [None]
  - PRODUCT QUALITY ISSUE [None]
